FAERS Safety Report 14756814 (Version 1)
Quarter: 2018Q2

REPORT INFORMATION
  Report Type: Spontaneous
  Country: US (occurrence: US)
  Receive Date: 20180408
  Receipt Date: 20180408
  Transmission Date: 20180711
  Serious: Yes (Other)
  Sender: FDA-Public Use
  Company Number: None

PATIENT
  Age: 56 Year
  Sex: Female
  Weight: 99 kg

DRUGS (6)
  1. PROBIOTICS [Concomitant]
     Active Substance: PROBIOTICS NOS
  2. VITAMIN D [Concomitant]
     Active Substance: CHOLECALCIFEROL
  3. GINGER. [Concomitant]
     Active Substance: GINGER
  4. SYMTHROID [Concomitant]
  5. DOTAREM [Suspect]
     Active Substance: GADOTERATE MEGLUMINE
     Dates: start: 20180405
  6. OMEGA OILS [Concomitant]

REACTIONS (5)
  - Burning sensation [None]
  - Anxiety [None]
  - Fear [None]
  - Toxicity to various agents [None]
  - Sensory disturbance [None]

NARRATIVE: CASE EVENT DATE: 20180406
